FAERS Safety Report 8498138-5 (Version None)
Quarter: 2012Q3

REPORT INFORMATION
  Report Type: 
  Country: None (occurrence: None)
  Receive Date: 20120709
  Receipt Date: 20120619
  Transmission Date: 20120928
  Serious: No
  Sender: FDA-Public Use
  Company Number: US-AMGEN-USASP2012025061

PATIENT
  Age: 62 Year
  Sex: Female

DRUGS (1)
  1. ENBREL [Suspect]
     Indication: RHEUMATOID ARTHRITIS
     Dosage: 50 MG, QWK
     Dates: start: 20111001, end: 20120405

REACTIONS (9)
  - NASAL DISCOMFORT [None]
  - SINUSITIS [None]
  - BACK PAIN [None]
  - DYSGEUSIA [None]
  - COUGH [None]
  - STOMATITIS [None]
  - OTORRHOEA [None]
  - RHEUMATOID ARTHRITIS [None]
  - NASAL CONGESTION [None]
